FAERS Safety Report 8827014 (Version 2)
Quarter: 2013Q2

REPORT INFORMATION
  Report Type: Spontaneous
  Country: FI (occurrence: FI)
  Receive Date: 20121007
  Receipt Date: 20130424
  Transmission Date: 20140414
  Serious: Yes (Death, Hospitalization, Other)
  Sender: FDA-Public Use
  Company Number: FI-ELI_LILLY_AND_COMPANY-FI201209008148

PATIENT
  Age: 73 Year
  Sex: Female

DRUGS (6)
  1. BURANA [Concomitant]
     Indication: PAIN
     Dosage: UNK
  2. PONSTAN FORTE [Concomitant]
     Indication: INFLAMMATORY PAIN
     Dosage: UNK
  3. FORSTEO [Suspect]
     Indication: OSTEOPOROSIS
     Dosage: 20 UG, QD
     Route: 058
     Dates: start: 20110201
  4. CORTISONE [Concomitant]
     Indication: RHEUMATIC DISORDER
     Dosage: 6 MG, QD
  5. CALCIUM D [Concomitant]
     Indication: MEDICAL DIET
     Dosage: UNK
  6. PANACOD [Concomitant]
     Indication: PAIN
     Dosage: UNK

REACTIONS (4)
  - Death [Fatal]
  - Cerebral haemorrhage [Not Recovered/Not Resolved]
  - Head injury [Not Recovered/Not Resolved]
  - Fall [Not Recovered/Not Resolved]
